FAERS Safety Report 12546163 (Version 3)
Quarter: 2016Q3

REPORT INFORMATION
  Report Type: Spontaneous
  Country: SA (occurrence: SA)
  Receive Date: 20160711
  Receipt Date: 20160915
  Transmission Date: 20161109
  Serious: Yes (Hospitalization, Other)
  Sender: FDA-Public Use
  Company Number: SA-INCYTE CORPORATION-2016IN004106

PATIENT
  Age: 53 Year
  Sex: Female

DRUGS (2)
  1. JAKAFI [Suspect]
     Active Substance: RUXOLITINIB
     Dosage: 20 MG, BID
     Route: 048
     Dates: start: 201603, end: 20160620
  2. JAKAFI [Suspect]
     Active Substance: RUXOLITINIB
     Indication: MYELOFIBROSIS
     Dosage: 20 MG, BID
     Route: 048
     Dates: start: 201603, end: 20160622

REACTIONS (18)
  - Second primary malignancy [Not Recovered/Not Resolved]
  - Anaemia [Unknown]
  - Splenic lesion [Unknown]
  - Splenomegaly [Unknown]
  - Renal cyst [Unknown]
  - Pulmonary mass [Recovering/Resolving]
  - Pancreatic carcinoma [Not Recovered/Not Resolved]
  - Metastases to liver [Not Recovered/Not Resolved]
  - Haemorrhage [Unknown]
  - Vertebral lesion [Unknown]
  - Platelet count decreased [Not Recovered/Not Resolved]
  - Obstruction [Unknown]
  - Abdominal pain [Unknown]
  - Mass [Unknown]
  - Retroperitoneal lymphadenopathy [Unknown]
  - Tumour invasion [Unknown]
  - Haemoglobin decreased [Unknown]
  - White blood cell count decreased [Unknown]

NARRATIVE: CASE EVENT DATE: 20160613
